FAERS Safety Report 7714827-1 (Version None)
Quarter: 2011Q3

REPORT INFORMATION
  Report Type: 
  Country: None (occurrence: None)
  Receive Date: 20110822
  Receipt Date: 20110818
  Transmission Date: 20111222
  Serious: Yes (Life-Threatening, Hospitalization, Other)
  Sender: FDA-Public Use
  Company Number: 20108874

PATIENT
  Age: 28 Year
  Sex: Male

DRUGS (3)
  1. VALIUM [Concomitant]
  2. LIORESAL [Suspect]
     Indication: MUSCLE SPASTICITY
     Dosage: 96 MCG, DAILY, INTRATHECAL
     Route: 037
  3. ORAL BACLOFEN [Concomitant]

REACTIONS (5)
  - DEVICE RELATED INFECTION [None]
  - INCISION SITE COMPLICATION [None]
  - DEVICE BREAKAGE [None]
  - MENINGITIS [None]
  - SECRETION DISCHARGE [None]
